FAERS Safety Report 20994199 (Version 1)
Quarter: 2022Q2

REPORT INFORMATION
  Report Type: Spontaneous
  Country: IT (occurrence: IT)
  Receive Date: 20220622
  Receipt Date: 20220622
  Transmission Date: 20220720
  Serious: Yes (Death, Hospitalization, Other)
  Sender: FDA-Public Use
  Company Number: IT-CELGENE-ITA-20210607681

PATIENT
  Age: 71 Year
  Sex: Female

DRUGS (30)
  1. AZACITIDINE [Suspect]
     Active Substance: AZACITIDINE
     Indication: Acute myeloid leukaemia
     Dosage: 75 MILLIGRAM/SQ. METER, QD (20 MILLIGRAM/SQ. METER)
     Route: 058
     Dates: start: 20210115, end: 20210616
  2. AZACITIDINE [Suspect]
     Active Substance: AZACITIDINE
     Dosage: UNK
     Dates: end: 20210225
  3. VENETOCLAX [Suspect]
     Active Substance: VENETOCLAX
     Indication: Acute myeloid leukaemia
     Dosage: 10 MILLIGRAM, QD (10 MILLIGRAM)
     Route: 048
     Dates: start: 20210115, end: 20210616
  4. VENETOCLAX [Suspect]
     Active Substance: VENETOCLAX
     Dosage: UNK
     Dates: end: 20210225
  5. PEVONEDISTAT [Suspect]
     Active Substance: PEVONEDISTAT
     Indication: Acute myeloid leukaemia
     Dosage: 20 MILLIGRAM/SQ. METER (FREQUENCY TEXT: NOT PROVIDED)
     Route: 042
     Dates: start: 20210115, end: 20210616
  6. PEVONEDISTAT [Suspect]
     Active Substance: PEVONEDISTAT
     Dosage: UNK
     Dates: end: 20210225
  7. LACOSAMIDE [Concomitant]
     Active Substance: LACOSAMIDE
     Indication: Prophylaxis
     Dosage: UNK (FREQUENCY TEXT: NOT PROVIDED)
     Dates: start: 20210315
  8. OLANZAPINE [Concomitant]
     Active Substance: OLANZAPINE
     Indication: Delirium
     Dosage: UNK (FREQUENCY TEXT: NOT PROVIDED)
     Dates: start: 20210312
  9. FUROSEMIDE [Concomitant]
     Active Substance: FUROSEMIDE
     Indication: Prophylaxis
     Dosage: UNK (FREQUENCY TEXT: NOT PROVIDED)
     Dates: start: 20210605, end: 20210614
  10. SERTRALINE [Concomitant]
     Active Substance: SERTRALINE HYDROCHLORIDE
     Indication: Prophylaxis
     Dosage: UNK (FREQUENCY TEXT: NOT PROVIDED)
     Dates: start: 20210213
  11. OMEPRAZOLE [Concomitant]
     Active Substance: OMEPRAZOLE
     Indication: Prophylaxis
     Dosage: UNK (FREQUENCY TEXT: NOT PROVIDED)
     Dates: start: 20210216
  12. POSACONAZOLE [Concomitant]
     Active Substance: POSACONAZOLE
     Indication: Antifungal prophylaxis
     Dosage: UNK (FREQUENCY TEXT: NOT PROVIDED)
     Dates: start: 20210210
  13. LEVOTHYROXINE SODIUM [Concomitant]
     Active Substance: LEVOTHYROXINE SODIUM
     Indication: Prolactin-producing pituitary tumour
     Dosage: UNK (FREQUENCY TEXT: NOT PROVIDED)
     Dates: start: 20210119
  14. CABERGOLINE [Concomitant]
     Active Substance: CABERGOLINE
     Indication: Hyperprolactinaemia
     Dosage: UNK (FREQUENCY TEXT: NOT PROVIDED)
     Dates: start: 2017
  15. CORTISONE ACETATE [Concomitant]
     Active Substance: CORTISONE ACETATE
     Indication: Prolactin-producing pituitary tumour
     Dosage: UNK (FREQUENCY TEXT: NOT PROVIDED)
     Dates: start: 20210222
  16. ADEMETIONINE [Concomitant]
     Active Substance: ADEMETIONINE
     Indication: Prophylaxis
     Dosage: UNK (FREQUENCY TEXT: NOT PROVIDED)
     Dates: start: 20210608, end: 20210616
  17. POTASSIUM CHLORIDE [Concomitant]
     Active Substance: POTASSIUM CHLORIDE
     Indication: Prophylaxis
     Dosage: UNK (FREQUENCY TEXT: NOT PROVIDED)
     Dates: start: 20210611, end: 20210614
  18. AMLODIPINE [Concomitant]
     Active Substance: AMLODIPINE BESYLATE
     Indication: Hypertension
     Dosage: UNK (FREQUENCY TEXT: NOT PROVIDED)
     Dates: start: 20210202
  19. CANRENOATE POTASSIUM [Concomitant]
     Active Substance: CANRENOATE POTASSIUM
     Indication: Prophylaxis
     Dosage: FREQUENCY TEXT: NOT PROVIDED
     Dates: start: 20210215
  20. ACYCLOVIR [Concomitant]
     Active Substance: ACYCLOVIR
     Indication: Antiviral prophylaxis
     Dosage: FREQUENCY TEXT: NOT PROVIDED
     Dates: start: 20210308
  21. PANTOPRAZOLE SODIUM [Concomitant]
     Active Substance: PANTOPRAZOLE SODIUM
     Indication: Antacid therapy
     Dosage: FREQUENCY TEXT: NOT PROVIDED
  22. PANTOPRAZOLE SODIUM [Concomitant]
     Active Substance: PANTOPRAZOLE SODIUM
     Indication: Prophylaxis against gastrointestinal ulcer
  23. ALLOPURINOL [Concomitant]
     Active Substance: ALLOPURINOL
     Indication: Prophylaxis
     Dosage: FREQUENCY TEXT: NOT PROVIDED
     Dates: start: 20210604, end: 20210614
  24. LEVOTHYROXINE SODIUM [Concomitant]
     Active Substance: LEVOTHYROXINE SODIUM
     Indication: Prophylaxis
     Dosage: FREQUENCY TEXT: NOT PROVIDED
  25. ENOXAPARIN [Concomitant]
     Active Substance: ENOXAPARIN
     Indication: Thrombosis prophylaxis
     Dosage: FREQUENCY TEXT: NOT PROVIDED
     Dates: start: 20210609, end: 20210615
  26. HALOPERIDOL [Concomitant]
     Active Substance: HALOPERIDOL
     Indication: Prophylaxis
     Dosage: FREQUENCY TEXT: NOT PROVIDED
     Dates: start: 20210312
  27. TRAMADOL HYDROCHLORIDE [Concomitant]
     Active Substance: TRAMADOL HYDROCHLORIDE
     Indication: Prophylaxis
     Dosage: FREQUENCY TEXT: NOT PROVIDED
     Dates: start: 20210608, end: 20210616
  28. ALPRAZOLAM [Concomitant]
     Active Substance: ALPRAZOLAM
     Indication: Prophylaxis
     Dosage: FREQUENCY TEXT: NOT PROVIDED
     Dates: start: 20210311
  29. ALPRAZOLAM [Concomitant]
     Active Substance: ALPRAZOLAM
     Indication: Delirium
  30. RAMIPRIL [Concomitant]
     Active Substance: RAMIPRIL
     Indication: Hypertension
     Dosage: FREQUENCY TEXT: NOT PROVIDED
     Dates: start: 20210305

REACTIONS (4)
  - Malignant neoplasm progression [Fatal]
  - General physical health deterioration [Fatal]
  - Femur fracture [Not Recovered/Not Resolved]
  - Fall [Unknown]

NARRATIVE: CASE EVENT DATE: 20210620
